FAERS Safety Report 10637824 (Version 1)
Quarter: 2014Q4

REPORT INFORMATION
  Report Type: Spontaneous
  Country: IT (occurrence: IT)
  Receive Date: 20141208
  Receipt Date: 20141208
  Transmission Date: 20150529
  Serious: Yes (Death, Hospitalization)
  Sender: FDA-Public Use
  Company Number: IT-MYLANLABS-2014M1012355

PATIENT

DRUGS (3)
  1. LORAZEPAM. [Suspect]
     Active Substance: LORAZEPAM
     Indication: MENTAL RETARDATION
  2. OLANZAPINE. [Suspect]
     Active Substance: OLANZAPINE
     Indication: MENTAL RETARDATION
  3. BIPERIDENE HYDROCHLORIDE [Suspect]
     Active Substance: BIPERIDEN
     Indication: MENTAL RETARDATION

REACTIONS (5)
  - Large intestine perforation [None]
  - Peritonitis [None]
  - Megacolon [Fatal]
  - Stupor [None]
  - Faecaloma [None]
